FAERS Safety Report 5937171-1 (Version None)
Quarter: 2008Q4

REPORT INFORMATION
  Report Type: 
  Country: None (occurrence: None)
  Receive Date: 20081031
  Receipt Date: 20081021
  Transmission Date: 20090506
  Serious: Yes (Hospitalization)
  Sender: FDA-Public Use
  Company Number: US-JNJFOC-20081005560

PATIENT
  Sex: Male
  Weight: 41.73 kg

DRUGS (6)
  1. REMICADE [Suspect]
     Indication: CROHN'S DISEASE
     Dosage: AT WEEKS 0, 2, AND 6
     Route: 042
  2. FLORASTOR [Suspect]
     Indication: PROBIOTIC THERAPY
  3. ENTOCORT EC [Concomitant]
  4. ZANTAC [Concomitant]
  5. REGLAN [Concomitant]
     Indication: NAUSEA
  6. ZOFRAN [Concomitant]
     Indication: NAUSEA

REACTIONS (5)
  - CATHETER THROMBOSIS [None]
  - DIARRHOEA [None]
  - PAIN [None]
  - THERAPEUTIC RESPONSE DECREASED [None]
  - VOMITING [None]
